FAERS Safety Report 14473744 (Version 1)
Quarter: 2018Q1

REPORT INFORMATION
  Report Type: Spontaneous
  Country: US (occurrence: US)
  Receive Date: 20180201
  Receipt Date: 20180201
  Transmission Date: 20180509
  Serious: No
  Sender: FDA-Public Use
  Company Number: US-PFIZER INC-2018038983

PATIENT
  Age: 66 Year
  Sex: Female

DRUGS (10)
  1. PANTOPRAZOLE [Concomitant]
     Active Substance: PANTOPRAZOLE
     Dosage: UNK
  2. METOPROLOL TARTRATE. [Concomitant]
     Active Substance: METOPROLOL TARTRATE
     Dosage: UNK
  3. JAKAFI [Interacting]
     Active Substance: RUXOLITINIB
     Indication: MYELOFIBROSIS
     Dosage: 5 MG, 2X/DAY (BID)
     Route: 048
     Dates: start: 20170820
  4. JAKAFI [Interacting]
     Active Substance: RUXOLITINIB
     Indication: POLYCYTHAEMIA VERA
     Dosage: 5 MG, 2X/DAY (BID)
     Route: 048
  5. JAKAFI [Interacting]
     Active Substance: RUXOLITINIB
     Dosage: 5 MG, 2X/DAY (BID)
     Route: 048
  6. JAKAFI [Interacting]
     Active Substance: RUXOLITINIB
     Dosage: 5 MG, 2X/DAY (QD)
     Route: 048
     Dates: start: 20171004
  7. ASPIRIN /00002701/ [Concomitant]
     Active Substance: ASPIRIN
     Dosage: 81 MG, UNK (FOR TWO WEEKS)
  8. MISOPROSTOL. [Concomitant]
     Active Substance: MISOPROSTOL
     Dosage: UNK
  9. PROTONIX [Suspect]
     Active Substance: PANTOPRAZOLE SODIUM
     Dosage: UNK
  10. CYTOTEC [Concomitant]
     Active Substance: MISOPROSTOL
     Dosage: UNK

REACTIONS (26)
  - Sleep disorder [Recovering/Resolving]
  - Feeling abnormal [Unknown]
  - Pain in extremity [Unknown]
  - Contusion [Recovered/Resolved]
  - Splenomegaly [Unknown]
  - Pruritus [Unknown]
  - Therapeutic response unexpected [Recovering/Resolving]
  - Haemoglobin decreased [Unknown]
  - Haematocrit decreased [Unknown]
  - Asthenia [Unknown]
  - Drug interaction [Unknown]
  - Platelet count decreased [Unknown]
  - White blood cell count decreased [Unknown]
  - Back disorder [Unknown]
  - Dry skin [Unknown]
  - Abdominal pain upper [Unknown]
  - Diarrhoea [Unknown]
  - Hepatomegaly [Unknown]
  - Fatigue [Unknown]
  - Abdominal pain [Unknown]
  - Weight decreased [Unknown]
  - Red blood cell count decreased [Unknown]
  - Erythema [Unknown]
  - Gingival bleeding [Unknown]
  - Malaise [Unknown]
  - Headache [Recovered/Resolved]

NARRATIVE: CASE EVENT DATE: 201708
